FAERS Safety Report 8853355 (Version 1)
Quarter: 2012Q4

REPORT INFORMATION
  Report Type: 
  Country: CA (occurrence: CA)
  Receive Date: 20121022
  Receipt Date: 20121022
  Transmission Date: 20130627
  Serious: Yes (Other)
  Sender: FDA-Public Use
  Company Number: CA-ROCHE-1147385

PATIENT
  Age: 2 Year

DRUGS (2)
  1. SOMATROPIN [Suspect]
     Indication: PRADER-WILLI SYNDROME
     Route: 065
  2. SOMATROPIN [Suspect]
     Indication: OFF LABEL USE

REACTIONS (1)
  - Sleep apnoea syndrome [Recovering/Resolving]
